FAERS Safety Report 14643858 (Version 4)
Quarter: 2018Q1

REPORT INFORMATION
  Report Type: Spontaneous
  Country: BR (occurrence: BR)
  Receive Date: 20180315
  Receipt Date: 20180329
  Transmission Date: 20180509
  Serious: Yes (Other)
  Sender: FDA-Public Use
  Company Number: BR-PFIZER INC-2018019758

PATIENT
  Age: 30 Year
  Sex: Male

DRUGS (4)
  1. SERTRALINE HCL [Suspect]
     Active Substance: SERTRALINE HYDROCHLORIDE
     Dosage: UNK, ONCE DAILY (IN THE MORNING)
     Dates: start: 2017
  2. LORAX [Suspect]
     Active Substance: LORAZEPAM
     Dosage: 5 MG, AS NEEDED (TWICE DAILY OR SOMETIMES WAS NEEDED AT A HIGHER DOSE)
     Dates: start: 2010
  3. CIALIS [Concomitant]
     Active Substance: TADALAFIL
     Dosage: UNK
  4. CARBAMAZEPINE. [Suspect]
     Active Substance: CARBAMAZEPINE
     Dosage: UNK, ONCE DAILY (AT NIGHT)
     Dates: start: 2016, end: 2016

REACTIONS (5)
  - Injury [Not Recovered/Not Resolved]
  - Road traffic accident [Not Recovered/Not Resolved]
  - Apathy [Not Recovered/Not Resolved]
  - Dependence [Not Recovered/Not Resolved]
  - Aggression [Not Recovered/Not Resolved]

NARRATIVE: CASE EVENT DATE: 201412
